FAERS Safety Report 14425253 (Version 2)
Quarter: 2018Q1

REPORT INFORMATION
  Report Type: Spontaneous
  Country: DE (occurrence: DE)
  Receive Date: 20180123
  Receipt Date: 20180308
  Transmission Date: 20180509
  Serious: Yes (Other)
  Sender: FDA-Public Use
  Company Number: DE-GALDERMA-DE17012874

PATIENT
  Age: 16 Year
  Sex: Male
  Weight: 97 kg

DRUGS (1)
  1. EPIDUO [Suspect]
     Active Substance: ADAPALENE\BENZOYL PEROXIDE
     Indication: ACNE
     Dosage: 0.1% / 2.5%
     Route: 061
     Dates: start: 20171001, end: 20171001

REACTIONS (6)
  - Erythema [Recovering/Resolving]
  - Angioedema [Recovering/Resolving]
  - Impetigo [Recovering/Resolving]
  - Swelling face [Recovering/Resolving]
  - Dermatitis contact [Recovering/Resolving]
  - Pruritus [Recovering/Resolving]

NARRATIVE: CASE EVENT DATE: 20171001
